FAERS Safety Report 25262592 (Version 2)
Quarter: 2025Q2

REPORT INFORMATION
  Report Type: Report from Study
  Country: CA (occurrence: CA)
  Receive Date: 20250502
  Receipt Date: 20250626
  Transmission Date: 20250717
  Serious: Yes (Other)
  Sender: TAKEDA
  Company Number: CA-TAKEDA-2025TUS041316

PATIENT
  Age: 17 Year
  Sex: Female

DRUGS (6)
  1. VEDOLIZUMAB [Suspect]
     Active Substance: VEDOLIZUMAB
     Indication: Colitis ulcerative
  2. VEDOLIZUMAB [Suspect]
     Active Substance: VEDOLIZUMAB
     Dosage: 300 MILLIGRAM, Q4WEEKS
     Dates: start: 20230118
  3. VEDOLIZUMAB [Suspect]
     Active Substance: VEDOLIZUMAB
     Dosage: 300 MILLIGRAM, Q4WEEKS
  4. MESALAMINE [Concomitant]
     Active Substance: MESALAMINE
  5. METHOTREXATE [Concomitant]
     Active Substance: METHOTREXATE
  6. PREDNISONE [Concomitant]
     Active Substance: PREDNISONE

REACTIONS (5)
  - Pain [Recovered/Resolved]
  - Fatigue [Recovered/Resolved]
  - Pyrexia [Recovered/Resolved]
  - Off label use [Unknown]
  - Influenza like illness [Unknown]

NARRATIVE: CASE EVENT DATE: 20230118
